FAERS Safety Report 14204370 (Version 1)
Quarter: 2017Q4

REPORT INFORMATION
  Report Type: Spontaneous
  Country: US (occurrence: US)
  Receive Date: 20171117
  Receipt Date: 20171117
  Transmission Date: 20180321
  Serious: Yes (Other)
  Sender: FDA-Public Use
  Company Number: None

PATIENT
  Age: 75 Year
  Sex: Female

DRUGS (1)
  1. BUPRENORPHIN SUB [Suspect]
     Active Substance: BUPRENORPHINE
     Route: 060
     Dates: start: 20171114, end: 20171117

REACTIONS (2)
  - Oral discomfort [None]
  - Product substitution issue [None]

NARRATIVE: CASE EVENT DATE: 20171114
